FAERS Safety Report 20875444 (Version 1)
Quarter: 2022Q2

REPORT INFORMATION
  Report Type: Spontaneous
  Country: FR (occurrence: FR)
  Receive Date: 20220526
  Receipt Date: 20220526
  Transmission Date: 20220721
  Serious: Yes (Hospitalization)
  Sender: FDA-Public Use
  Company Number: None

PATIENT
  Age: 60 Year
  Sex: Female
  Weight: 57.6 kg

DRUGS (1)
  1. BETAMETHASONE DIPROPIONATE\BETAMETHASONE SODIUM PHOSPHATE [Suspect]
     Active Substance: BETAMETHASONE DIPROPIONATE\BETAMETHASONE SODIUM PHOSPHATE
     Indication: Rotator cuff syndrome
     Dosage: 1 DOSAGE FORM
     Route: 014
     Dates: start: 20220301

REACTIONS (2)
  - Artery dissection [Not Recovered/Not Resolved]
  - Renal infarct [Not Recovered/Not Resolved]

NARRATIVE: CASE EVENT DATE: 20220304
